FAERS Safety Report 4492498-8 (Version None)
Quarter: 2004Q4

REPORT INFORMATION
  Report Type: 
  Country: None (occurrence: None)
  Receive Date: 20041029
  Receipt Date: 20041019
  Transmission Date: 20050328
  Serious: Yes (Life-Threatening, Hospitalization)
  Sender: FDA-Public Use
  Company Number: 2004US001259

PATIENT
  Age: 53 Year
  Sex: Female
  Weight: 57 kg

DRUGS (3)
  1. PROGRAF [Suspect]
     Indication: IMMUNOSUPPRESSION
     Dosage: 15.00 MG
     Dates: start: 20040703, end: 20040923
  2. PREDNISONE [Concomitant]
  3. CELLCEPT [Concomitant]

REACTIONS (11)
  - ARTERIOVENOUS FISTULA SITE INFECTION [None]
  - BLOOD CREATININE INCREASED [None]
  - BREAST INFECTION [None]
  - COLITIS [None]
  - COMPLICATIONS OF TRANSPLANTED KIDNEY [None]
  - DIARRHOEA [None]
  - HAEMODIALYSIS [None]
  - HERPES ZOSTER [None]
  - OESOPHAGITIS [None]
  - PANCYTOPENIA [None]
  - URINE OUTPUT INCREASED [None]
